FAERS Safety Report 9070556 (Version 1)
Quarter: 2013Q1

REPORT INFORMATION
  Report Type: Spontaneous
  Country: US (occurrence: US)
  Receive Date: 20130215
  Receipt Date: 20130215
  Transmission Date: 20140127
  Serious: Yes (Hospitalization)
  Sender: FDA-Public Use
  Company Number: US-BAYER-2013-019798

PATIENT
  Age: 34 Year
  Sex: Female

DRUGS (15)
  1. BEYAZ [Suspect]
  2. LANTUS [Concomitant]
     Dosage: 35 U, UNK
  3. NOVOLOG [Concomitant]
     Dosage: 100 U/ML, VARIES DAY TO DAY
  4. ALTACE [Concomitant]
     Dosage: 5 MG, 1 DAILY
     Route: 048
  5. ALTACE [Concomitant]
     Dosage: 2.5 MG, QD
     Route: 048
  6. WELLBUTRIN [Concomitant]
     Dosage: 300 MG, ONE DAILY
     Route: 048
  7. CELEXA [Concomitant]
     Dosage: 40 MG, 1 DAILY
     Route: 048
  8. ZYRTEC [Concomitant]
     Dosage: 10 MG, ONE DAILY AS NEEDED
     Route: 048
  9. VALIUM [Concomitant]
     Dosage: 10 MG, 1 DAILY
     Route: 048
  10. WELLBUTRIN XL [Concomitant]
     Dosage: 150 MG, QD
     Route: 048
  11. CRESTOR [Concomitant]
  12. BUPROPION [Concomitant]
  13. CITALOPRAM [Concomitant]
  14. LISINOPRIL [Concomitant]
  15. TYLENOL [Concomitant]
     Route: 048

REACTIONS (2)
  - Pulmonary embolism [None]
  - Deep vein thrombosis [None]
